FAERS Safety Report 15355407 (Version 1)
Quarter: 2018Q3

REPORT INFORMATION
  Report Type: Spontaneous
  Country: US (occurrence: US)
  Receive Date: 20180906
  Receipt Date: 20180906
  Transmission Date: 20181010
  Serious: No
  Sender: FDA-Public Use
  Company Number: US-AUROBINDO-AUR-APU-2017-46545

PATIENT
  Sex: Male
  Weight: 88.44 kg

DRUGS (1)
  1. OXYCODONE AND ACETAMINOPHEN [Suspect]
     Active Substance: ACETAMINOPHEN\OXYCODONE HYDROCHLORIDE
     Indication: BACK PAIN
     Dosage: UNK UNK, 3 TIMES A DAY
     Route: 065
     Dates: start: 20171213, end: 20171213

REACTIONS (1)
  - Drug ineffective [Unknown]
